FAERS Safety Report 22539103 (Version 13)
Quarter: 2024Q1

REPORT INFORMATION
  Report Type: Report from Study
  Country: US (occurrence: US)
  Receive Date: 20230609
  Receipt Date: 20240207
  Transmission Date: 20240410
  Serious: Yes (Hospitalization, Other)
  Sender: FDA-Public Use
  Company Number: US-INSMED, INC.-2023-01603-US

PATIENT
  Sex: Female

DRUGS (19)
  1. ARIKAYCE [Suspect]
     Active Substance: AMIKACIN
     Indication: Mycobacterium avium complex infection
     Dosage: 590 MILLIGRAM, QD
     Route: 055
     Dates: start: 20230428, end: 202305
  2. ARIKAYCE [Suspect]
     Active Substance: AMIKACIN
     Dosage: 590 MILLIGRAM, TIW (TUESDAY, THURSDAY AND SATURDAY)
     Route: 055
     Dates: start: 20230509, end: 20230527
  3. ARIKAYCE [Suspect]
     Active Substance: AMIKACIN
     Dosage: 590 MILLIGRAM, BIW
     Route: 055
     Dates: start: 2023, end: 202307
  4. ARIKAYCE [Suspect]
     Active Substance: AMIKACIN
     Dosage: 590 MILLIGRAM, TIW (TUESDAY, THURSDAY AND SATURDAY)
     Route: 055
     Dates: start: 202307, end: 2023
  5. ARIKAYCE [Suspect]
     Active Substance: AMIKACIN
     Dosage: 590 MILLIGRAM, BIW
     Route: 055
     Dates: start: 2023, end: 202312
  6. ARIKAYCE [Suspect]
     Active Substance: AMIKACIN
     Dosage: BIW ON THURSDAYS AND SATURDAYS
     Route: 055
     Dates: start: 20231221, end: 202312
  7. RIFABUTIN [Suspect]
     Active Substance: RIFABUTIN
     Indication: Product used for unknown indication
     Dosage: UNK
     Dates: start: 2023
  8. SODIUM CHLORIDE [Suspect]
     Active Substance: SODIUM CHLORIDE
     Indication: Product used for unknown indication
     Dosage: UNK, 3.5%, TID
     Route: 065
  9. AMIKACIN [Suspect]
     Active Substance: AMIKACIN
     Indication: Mycobacterium avium complex infection
     Dosage: UNK, QD
     Route: 042
  10. AMIKACIN [Suspect]
     Active Substance: AMIKACIN
     Dosage: UNK, TIW MONDAY, WEDNESDAY, FRIDAY
     Route: 042
     Dates: end: 2023
  11. AMIKACIN [Suspect]
     Active Substance: AMIKACIN
     Dosage: UNK, BIW
     Route: 042
     Dates: start: 202312, end: 202312
  12. AMIKACIN [Suspect]
     Active Substance: AMIKACIN
     Dosage: UNK, QD
     Route: 042
     Dates: start: 202312
  13. ETHAMBUTOL [Concomitant]
     Active Substance: ETHAMBUTOL HYDROCHLORIDE
     Indication: Mycobacterium avium complex infection
     Dosage: UNK
     Route: 048
  14. AZITHROMYCIN [Concomitant]
     Active Substance: AZITHROMYCIN
     Indication: Mycobacterium avium complex infection
     Dosage: UNK
     Route: 048
  15. ALBUTEROL [Concomitant]
     Active Substance: ALBUTEROL
     Indication: Product used for unknown indication
     Dosage: UNK, TID
     Route: 065
  16. YUPELRI [Concomitant]
     Active Substance: REVEFENACIN
     Indication: Product used for unknown indication
     Dosage: UNK
     Route: 065
  17. OXYGEN [Concomitant]
     Active Substance: OXYGEN
     Indication: Product used for unknown indication
     Dosage: UNK
     Route: 045
  18. ALBUTEROL [Concomitant]
     Active Substance: ALBUTEROL
     Indication: Product used for unknown indication
     Dosage: PRN
     Route: 055
  19. LEVAQUIN [Concomitant]
     Active Substance: LEVOFLOXACIN
     Indication: Product used for unknown indication
     Route: 065

REACTIONS (38)
  - Hospitalisation [Unknown]
  - Hospitalisation [Unknown]
  - Oxygen saturation decreased [Unknown]
  - Lung hyperinflation [Not Recovered/Not Resolved]
  - Lung disorder [Not Recovered/Not Resolved]
  - Dyspnoea [Not Recovered/Not Resolved]
  - Respiratory tract congestion [Unknown]
  - Sneezing [Not Recovered/Not Resolved]
  - Nasopharyngitis [Recovered/Resolved]
  - Nasopharyngitis [Not Recovered/Not Resolved]
  - Tongue coated [Unknown]
  - Drug intolerance [Unknown]
  - Tongue disorder [Unknown]
  - Candida infection [Unknown]
  - Infection [Unknown]
  - Hypersensitivity [Unknown]
  - Pain [Not Recovered/Not Resolved]
  - Head discomfort [Unknown]
  - Chest discomfort [Not Recovered/Not Resolved]
  - Throat irritation [Unknown]
  - Productive cough [Not Recovered/Not Resolved]
  - Dry mouth [Not Recovered/Not Resolved]
  - Throat irritation [Recovered/Resolved]
  - Headache [Recovered/Resolved]
  - Adverse drug reaction [Unknown]
  - Cough [Not Recovered/Not Resolved]
  - Fatigue [Not Recovered/Not Resolved]
  - Diarrhoea [Unknown]
  - Oropharyngeal pain [Not Recovered/Not Resolved]
  - Illness [Unknown]
  - Ill-defined disorder [Unknown]
  - Haemoptysis [Unknown]
  - Dyspnoea [Recovered/Resolved]
  - Drug ineffective [Unknown]
  - Product dose omission issue [Unknown]
  - Off label use [Unknown]
  - Therapy interrupted [Unknown]
  - Product administration error [Unknown]

NARRATIVE: CASE EVENT DATE: 20230101
